FAERS Safety Report 7161278-7 (Version None)
Quarter: 2010Q4

REPORT INFORMATION
  Report Type: 
  Country: None (occurrence: None)
  Receive Date: 20101215
  Receipt Date: 20101203
  Transmission Date: 20110411
  Serious: Yes (Hospitalization)
  Sender: FDA-Public Use
  Company Number: US-PFIZER INC-US-WYE-H17265510

PATIENT
  Sex: Female

DRUGS (14)
  1. ZITHROMAX [Suspect]
     Dosage: UNK
  2. PRISTIQ [Suspect]
     Indication: DEPRESSION
     Dosage: 50 MG, 1X/DAY
     Route: 065
     Dates: start: 20090901
  3. ACETYLSALICYLIC ACID [Concomitant]
     Route: 065
  4. BUDESONIDE [Concomitant]
     Route: 065
  5. CALCIUM [Concomitant]
     Route: 065
  6. DIGOXIN [Concomitant]
     Route: 065
  7. ERGOCALCIFEROL [Concomitant]
     Route: 065
  8. FUROSEMIDE [Concomitant]
     Route: 065
  9. LUBIPROSTONE [Concomitant]
     Route: 065
  10. TYLENOL (CAPLET) [Concomitant]
     Route: 065
  11. POTASSIUM [Concomitant]
     Route: 065
  12. SALBUTAMOL [Concomitant]
     Route: 065
  13. SIMVASTATIN [Concomitant]
     Route: 065
  14. THIAMAZOLE [Concomitant]
     Route: 065

REACTIONS (3)
  - MEDICATION RESIDUE [None]
  - TORSADE DE POINTES [None]
  - VENTRICULAR TACHYCARDIA [None]
